FAERS Safety Report 8457914-5 (Version None)
Quarter: 2012Q2

REPORT INFORMATION
  Report Type: 
  Country: None (occurrence: None)
  Receive Date: 20120622
  Receipt Date: 20120613
  Transmission Date: 20120825
  Serious: Yes (Life-Threatening, Hospitalization)
  Sender: FDA-Public Use
  Company Number: FR-JNJFOC-20120610091

PATIENT
  Sex: Male
  Weight: 75 kg

DRUGS (4)
  1. ACETAMINOPHEN [Concomitant]
  2. TRAMADOL HCL [Concomitant]
  3. XARELTO [Suspect]
     Indication: THROMBOSIS PROPHYLAXIS
     Route: 048
  4. XARELTO [Suspect]
     Indication: KNEE ARTHROPLASTY
     Route: 048

REACTIONS (6)
  - HEADACHE [None]
  - ALTERED STATE OF CONSCIOUSNESS [None]
  - MENINGITIS [None]
  - CEREBRAL HAEMORRHAGE [None]
  - GENERAL PHYSICAL HEALTH DETERIORATION [None]
  - NAUSEA [None]
